FAERS Safety Report 6423612-2 (Version None)
Quarter: 2009Q4

REPORT INFORMATION
  Report Type: 
  Country: None (occurrence: None)
  Receive Date: 20091102
  Receipt Date: 20091102
  Transmission Date: 20100525
  Serious: Yes (Other)
  Sender: FDA-Public Use
  Company Number: FR-PFIZER INC-2009249307

PATIENT
  Age: 70 Year
  Sex: Male

DRUGS (3)
  1. ZOXAN [Suspect]
     Indication: BENIGN PROSTATIC HYPERPLASIA
     Dosage: 1 DF, WEEKLY
     Dates: start: 20081101
  2. ZOXAN [Suspect]
     Indication: DYSURIA
  3. AMLOR [Concomitant]
     Indication: HYPERTENSION

REACTIONS (5)
  - ALANINE AMINOTRANSFERASE INCREASED [None]
  - ASPARTATE AMINOTRANSFERASE INCREASED [None]
  - ASTHENIA [None]
  - GAMMA-GLUTAMYLTRANSFERASE INCREASED [None]
  - PRESYNCOPE [None]
